FAERS Safety Report 16563771 (Version 3)
Quarter: 2019Q4

REPORT INFORMATION
  Report Type: Spontaneous
  Country: US (occurrence: US)
  Receive Date: 20190712
  Receipt Date: 20191025
  Transmission Date: 20200122
  Serious: Yes (Other)
  Sender: FDA-Public Use
  Company Number: US-ROCHE-2352495

PATIENT
  Sex: Female

DRUGS (2)
  1. PRILOSEC [Interacting]
     Active Substance: OMEPRAZOLE MAGNESIUM
     Indication: PRODUCT USED FOR UNKNOWN INDICATION
     Route: 065
  2. XELODA [Suspect]
     Active Substance: CAPECITABINE
     Indication: BREAST CANCER METASTATIC
     Route: 048
     Dates: start: 20190219, end: 20190703

REACTIONS (6)
  - Hepatic steatosis [Unknown]
  - Skin exfoliation [Unknown]
  - Drug interaction [Unknown]
  - Metastases to liver [Not Recovered/Not Resolved]
  - Drug ineffective [Unknown]
  - Palmar-plantar erythrodysaesthesia syndrome [Unknown]

NARRATIVE: CASE EVENT DATE: 20190703
